FAERS Safety Report 5156893-6 (Version None)
Quarter: 2006Q4

REPORT INFORMATION
  Report Type: 
  Country: None (occurrence: None)
  Receive Date: 20060918
  Receipt Date: 20060623
  Transmission Date: 20070319
  Serious: Yes (Other)
  Sender: FDA-Public Use
  Company Number: US-JNJFOC-20060605227

PATIENT
  Age: 45 Year
  Sex: Female
  Weight: 104.3273 kg

DRUGS (6)
  1. TOPAMAX [Suspect]
     Indication: GRAND MAL CONVULSION
     Dosage: 200 MG, IN 1 DAY ORAL
     Route: 048
     Dates: start: 20060201
  2. NEURONTIN [Concomitant]
  3. DETROL [Concomitant]
  4. GEODON [Concomitant]
  5. EFFEXOR [Concomitant]
  6. KETEK [Concomitant]

REACTIONS (3)
  - PETIT MAL EPILEPSY [None]
  - SINUSITIS [None]
  - WEIGHT DECREASED [None]
